FAERS Safety Report 8314643-6 (Version None)
Quarter: 2012Q2

REPORT INFORMATION
  Report Type: 
  Country: None (occurrence: None)
  Receive Date: 20120426
  Receipt Date: 20120416
  Transmission Date: 20120825
  Serious: Yes (Hospitalization)
  Sender: FDA-Public Use
  Company Number: US-ROCHE-GNE309791

PATIENT
  Sex: Female
  Weight: 93.978 kg

DRUGS (11)
  1. ZYRTEC [Concomitant]
     Indication: HYPERSENSITIVITY
     Dosage: UNK
  2. RHINOCORT [Concomitant]
     Indication: HYPERSENSITIVITY
     Dosage: UNK
  3. OMALIZUMAB [Suspect]
     Indication: ASTHMA
     Dosage: 150 MG, Q4W
     Route: 058
     Dates: start: 20100320
  4. SINGULAIR [Concomitant]
     Indication: ASTHMA
  5. VITAMIN AND MINERAL PRENATAL SUPPLEMENT W/ FOLIC ACID CAP [Concomitant]
     Indication: PREGNANCY
     Dosage: UNK
  6. SYMBICORT [Concomitant]
     Indication: ASTHMA
     Dosage: UNK
  7. FLONASE [Concomitant]
     Indication: HYPERSENSITIVITY
  8. IRON SUPPLEMENT [Concomitant]
     Indication: PREGNANCY
     Dosage: UNK
  9. OMALIZUMAB [Suspect]
     Dates: start: 20110917
  10. TYLENOL (CAPLET) [Concomitant]
     Indication: HEADACHE
  11. LOHIST NOS [Concomitant]
     Indication: HYPERSENSITIVITY

REACTIONS (2)
  - MATERNAL EXPOSURE DURING PREGNANCY [None]
  - GESTATIONAL HYPERTENSION [None]
